FAERS Safety Report 8567396 (Version 6)
Quarter: 2013Q1

REPORT INFORMATION
  Report Type: Report from Study
  Country: JP (occurrence: JP)
  Receive Date: 20120517
  Receipt Date: 20130218
  Transmission Date: 20140127
  Serious: Yes (Hospitalization)
  Sender: FDA-Public Use
  Company Number: JP-AMGEN-JPNCT2012030664

PATIENT
  Age: 40 Year
  Sex: Female
  Weight: 63 kg

DRUGS (11)
  1. DENOSUMAB [Suspect]
     Indication: RHEUMATOID ARTHRITIS
     Dosage: UNK
     Route: 058
     Dates: start: 20110827
  2. METHOTREXATE [Concomitant]
     Indication: RHEUMATOID ARTHRITIS
     Dosage: 6 MG, QWK
     Route: 048
     Dates: start: 20110904
  3. FOLIAMIN [Concomitant]
     Indication: PROPHYLAXIS
     Dosage: 5 MG, QWK
     Route: 048
     Dates: start: 20110928
  4. PURSENNID [Concomitant]
     Indication: CONSTIPATION
     Dosage: 24 MG, PRN
     Route: 048
     Dates: start: 20111025
  5. CALCICHEW D3 [Concomitant]
     Indication: PRODUCT USED FOR UNKNOWN INDICATION
     Dosage: UNK UNK, QD
     Route: 048
     Dates: start: 20110803
  6. CABASER [Concomitant]
     Indication: HYPERPROLACTINAEMIA
     Dosage: 0.25 MG, QWK
     Route: 048
     Dates: start: 20110615
  7. ATOLANT [Concomitant]
     Indication: INFECTION
     Dosage: UNK UNK, PRN
     Route: 062
     Dates: start: 2009
  8. LOCOID [Concomitant]
     Indication: ECZEMA
     Dosage: UNK UNK, QD
     Route: 062
     Dates: start: 2009
  9. VOLLEY [Concomitant]
     Indication: INFECTION
     Dosage: UNK UNK, QD
     Route: 062
     Dates: start: 2009
  10. UREPEARL [Concomitant]
     Indication: ECZEMA
     Dosage: UNK UNK, PRN
     Route: 062
     Dates: start: 2009
  11. LOXONIN [Concomitant]
     Indication: HEADACHE
     Dosage: 60 MG, PRN
     Route: 048

REACTIONS (1)
  - Intervertebral disc protrusion [Recovered/Resolved]
